FAERS Safety Report 9762093 (Version 4)
Quarter: 2014Q3

REPORT INFORMATION
  Report Type: Spontaneous
  Country: DE (occurrence: None)
  Receive Date: 20131213
  Receipt Date: 20140707
  Transmission Date: 20150326
  Serious: Yes (Hospitalization)
  Sender: FDA-Public Use
  Company Number: SYM-2013-13642

PATIENT
  Age: 66 Year
  Sex: Female

DRUGS (7)
  1. CO-DIOVAN [Concomitant]
     Active Substance: HYDROCHLOROTHIAZIDE\VALSARTAN
  2. METFORMIN HYDROCHLORIDE (METFORMIN HYDROCHLORIDE) [Concomitant]
     Active Substance: METFORMIN HYDROCHLORIDE
  3. BUPROPION HYDROCHLORIDE (BUPROPION HYDROCHLORIDE) (TABLET) (BUPROPION HYDROCHLORIDE) [Suspect]
     Active Substance: BUPROPION HYDROCHLORIDE
     Indication: SMOKING CESSATION THERAPY
     Dosage: 300 MG, 2 IN 1 D
     Route: 048
     Dates: start: 20130821, end: 20131113
  4. VARENICLINE [Suspect]
     Active Substance: VARENICLINE
     Indication: SMOKING CESSATION THERAPY
     Dosage: 2 MG, 2 IN 1 D
     Route: 048
     Dates: start: 20130821, end: 20131113
  5. NICOTINE. [Suspect]
     Active Substance: NICOTINE
     Indication: SMOKING CESSATION THERAPY
     Route: 062
     Dates: start: 20130828, end: 20131113
  6. ATORVASTATIN CALCIUM (ATORVASTATIN CALCIUM) [Concomitant]
     Active Substance: ATORVASTATIN CALCIUM
  7. MONOVO (MOMETASONE FUROATE) (MOMETASONE FUROATE) [Concomitant]
     Active Substance: MOMETASONE FUROATE

REACTIONS (1)
  - Psoriasis [None]

NARRATIVE: CASE EVENT DATE: 20131115
